FAERS Safety Report 21138239 (Version 1)
Quarter: 2022Q3

REPORT INFORMATION
  Report Type: Spontaneous
  Country: US (occurrence: US)
  Receive Date: 20220727
  Receipt Date: 20220727
  Transmission Date: 20221026
  Serious: No
  Sender: FDA-Public Use
  Company Number: US-TAKEDA-2022TUS050583

PATIENT
  Age: 27 Year
  Sex: Male

DRUGS (1)
  1. ENTYVIO [Suspect]
     Active Substance: VEDOLIZUMAB
     Indication: Colitis ulcerative
     Dosage: UNK
     Route: 042
     Dates: start: 2022

REACTIONS (3)
  - Abdominal discomfort [Not Recovered/Not Resolved]
  - Vein collapse [Not Recovered/Not Resolved]
  - Fatigue [Not Recovered/Not Resolved]
